FAERS Safety Report 11072857 (Version 3)
Quarter: 2015Q2

REPORT INFORMATION
  Report Type: Spontaneous
  Country: US (occurrence: US)
  Receive Date: 20150428
  Receipt Date: 20150512
  Transmission Date: 20150821
  Serious: No
  Sender: FDA-Public Use
  Company Number: US-PFIZER INC-2015134555

PATIENT
  Age: 72 Year
  Sex: Female
  Weight: 63 kg

DRUGS (13)
  1. AMLODIPINE [Suspect]
     Active Substance: AMLODIPINE BESYLATE
     Indication: HYPERTENSION
     Dosage: 5MG IN AM; 2.5MG IN PM, 2X/DAY
     Dates: end: 2015
  2. ASPIRINE [Concomitant]
     Active Substance: ASPIRIN
     Dosage: 81 MG, DAILY
  3. OMEGA 3 /01333901/ [Concomitant]
     Dosage: UNK, 1X/DAY
  4. METOPROLOL [Concomitant]
     Active Substance: METOPROLOL
     Dosage: 5 MG, UNK
  5. VITAMIN C [Concomitant]
     Active Substance: ASCORBIC ACID
     Dosage: 1000 MG, AS NEEDED
  6. METOPROLOL [Concomitant]
     Active Substance: METOPROLOL
     Indication: HYPERTENSION
     Dosage: 25 MG, 1X/DAY
  7. COCONUT OIL [Concomitant]
     Active Substance: COCONUT OIL
     Dosage: 1 DF, DAILY
  8. COENZYME Q10 [Concomitant]
     Active Substance: UBIDECARENONE
     Dosage: 100 MG, 1X/DAY
  9. VITAMIN D3 [Concomitant]
     Active Substance: CHOLECALCIFEROL
     Dosage: 2000 MG, DAILY
  10. HYDROCHLOROTHIAZIDE. [Concomitant]
     Active Substance: HYDROCHLOROTHIAZIDE
     Indication: HYPERTENSION
     Dosage: 12.5 MG, 1X/DAY AT NIGHT
  11. PROBIOTIC ACIDOPHILUS /00079701/ [Concomitant]
     Dosage: DOSAGE 1 BILLION
  12. GLUCOSAMINE CHONDROITIN /01430901/ [Concomitant]
  13. SALONPAS PAIN RELIEVING PATCH [Concomitant]
     Indication: ARTHRALGIA

REACTIONS (2)
  - Peripheral swelling [Not Recovered/Not Resolved]
  - Micturition frequency decreased [Unknown]
